FAERS Safety Report 8961410 (Version 2)
Quarter: 2012Q4

REPORT INFORMATION
  Report Type: 
  Country: US (occurrence: US)
  Receive Date: 20121212
  Receipt Date: 20121227
  Transmission Date: 20130627
  Serious: Yes (Hospitalization, Other)
  Sender: FDA-Public Use
  Company Number: US-CELGENEUS-163-21880-12103083

PATIENT
  Sex: Female
  Weight: 95.34 kg

DRUGS (6)
  1. REVLIMID [Suspect]
     Indication: 5Q MINUS MYELODYSPLASTIC SYNDROME
     Dosage: 10 Milligram
     Route: 048
     Dates: start: 20121008, end: 20121103
  2. REVLIMID [Suspect]
     Dosage: 10 Milligram
     Route: 048
     Dates: start: 2012, end: 20121103
  3. PROCRIT [Concomitant]
     Indication: MDS
     Dosage: 60,000 units
     Route: 065
     Dates: start: 201109
  4. OXYCONTIN [Concomitant]
     Indication: PAIN
     Dosage: 10 Milligram
     Route: 065
  5. LEVAQUIN [Concomitant]
     Indication: UTI
     Route: 065
  6. MACRODANTIN [Concomitant]
     Indication: UTI
     Dosage: 50 Milligram
     Route: 065

REACTIONS (9)
  - Bloody discharge [Not Recovered/Not Resolved]
  - Rash pruritic [Not Recovered/Not Resolved]
  - Pyrexia [Not Recovered/Not Resolved]
  - Herpes zoster [Unknown]
  - Bone pain [Not Recovered/Not Resolved]
  - Urine output decreased [Not Recovered/Not Resolved]
  - Diarrhoea [Not Recovered/Not Resolved]
  - Urinary tract infection [Not Recovered/Not Resolved]
  - Fatigue [Not Recovered/Not Resolved]
